FAERS Safety Report 4478949-3 (Version None)
Quarter: 2004Q4

REPORT INFORMATION
  Report Type: 
  Country: None (occurrence: None)
  Receive Date: 20041014
  Receipt Date: 20040929
  Transmission Date: 20050328
  Serious: Yes (Other)
  Sender: FDA-Public Use
  Company Number: 2004236676JP

PATIENT
  Age: 70 Year
  Sex: Male

DRUGS (2)
  1. CAMPTOSAR [Suspect]
     Indication: GASTRIC CANCER
     Dosage: 80 MG, IV DRIP
     Route: 041
     Dates: start: 20040805, end: 20040819
  2. TEGAFUR (TEGAFUR0 [Suspect]
     Indication: GASTRIC CANCER
     Dosage: 40 MG, ORAL
     Route: 048
     Dates: start: 20040805, end: 20040819

REACTIONS (2)
  - HEPATITIS FULMINANT [None]
  - HEPATITIS VIRAL [None]
